FAERS Safety Report 15265714 (Version 1)
Quarter: 2018Q4

REPORT INFORMATION
  Report Type: Spontaneous
  Country: CN (occurrence: CN)
  Receive Date: 20180810
  Receipt Date: 20180810
  Transmission Date: 20190204
  Serious: Yes (Death, Other)
  Sender: FDA-Public Use
  Company Number: CN-BAXTER-2018BAX020845

PATIENT
  Age: 39 Year
  Sex: Male
  Weight: 100 kg

DRUGS (33)
  1. 0.9% SODIUM CHLORIDE INJECTION [Suspect]
     Active Substance: SODIUM CHLORIDE
     Indication: MEDICATION DILUTION
     Dosage: Q12H, SOLVENT FOR SULING
     Route: 040
     Dates: start: 20180529, end: 20180602
  2. 20% MANNITOL INJECTION [Suspect]
     Active Substance: MANNITOL
     Indication: BRAIN OEDEMA
     Dosage: DOSE REINTRODUCED
     Route: 041
  3. CEFTAZIDIME. [Suspect]
     Active Substance: CEFTAZIDIME
     Indication: PNEUMONIA ASPIRATION
     Dosage: DILUTED IN NS (ZHEJIANG KANGJI^ER PHARMACEUTICAL CO., LTD.).
     Route: 041
     Dates: start: 20180529, end: 20180605
  4. SODIUM BICARBONATE. [Suspect]
     Active Substance: SODIUM BICARBONATE
     Indication: URINE ALKALINISATION THERAPY
     Route: 065
     Dates: start: 20180604
  5. 0.9% SODIUM CHLORIDE INJECTION [Suspect]
     Active Substance: SODIUM CHLORIDE
     Dosage: QD, ROUTE: VIA MICROPUMP INFUSION, SOLVENT FOR SODIUM VALPROATE POWDER FOR INJECTION
     Route: 065
     Dates: start: 20180529, end: 20180605
  6. FUROSEMIDE. [Suspect]
     Active Substance: FUROSEMIDE
     Indication: BRAIN OEDEMA
     Dosage: DOSE REINTRODUCED
     Route: 042
  7. SODIUM CHLORIDE. [Suspect]
     Active Substance: SODIUM CHLORIDE
     Dosage: SOLVENT FOR BEIQINGXING
     Route: 041
  8. TRANEXAMIC ACID. [Suspect]
     Active Substance: TRANEXAMIC ACID
     Indication: BRAIN STEM HAEMORRHAGE
     Dosage: DILUTED IN GLUCOSE 5%
     Route: 041
     Dates: start: 20180529, end: 20180602
  9. LAILIXIN [Suspect]
     Active Substance: LEVOFLOXACIN
     Indication: PNEUMONIA ASPIRATION
     Route: 041
     Dates: start: 20180601, end: 20180603
  10. BEIQINGXING [Suspect]
     Active Substance: OXIRACETAM
     Indication: BRAIN STEM HAEMORRHAGE
     Dosage: DILUTED IN SODIUM CHLORIDE (ZHEJIANG KANGJI^ER PHARMACEUTICAL CO., LTD)
     Route: 041
     Dates: start: 20180529, end: 20180602
  11. SODIUM CHLORIDE. [Suspect]
     Active Substance: SODIUM CHLORIDE
     Dosage: SOLVENT FOR CEFTAZIDIME FOR INJECTION
     Route: 041
  12. GLUCOSE [Suspect]
     Active Substance: DEXTROSE
     Dosage: SOLVENT FOR TROXERUTIN AND CEREBROPROTEIN HYDROLYSATE INJECTION, DOSE REINTRODUCED
     Route: 041
  13. GLUCOSE [Suspect]
     Active Substance: DEXTROSE
     Dosage: SOLVENT FOR TRANEXAMIC ACID POWDER FOR INJECTION,  DOSE REINTRODUCED
     Route: 041
  14. CEFTAZIDIME. [Suspect]
     Active Substance: CEFTAZIDIME
     Dosage: DILUTED IN NS (ZHEJIANG KANGJI^ER PHARMACEUTICAL CO., LTD.), DOSE REINTRODUCED
     Route: 041
  15. BEIQINGXING [Suspect]
     Active Substance: OXIRACETAM
     Dosage: DOSE REINTRODUCED
     Route: 041
  16. LANSOPRAZOLE. [Suspect]
     Active Substance: LANSOPRAZOLE
     Indication: STRESS ULCER
     Dosage: Q12H, DILUTED IN SODIUM CHLORIDE ((ZHEJIANG KANGJI^ER PHARMACEUTICAL CO., LTD.)
     Route: 041
     Dates: start: 20180529, end: 20180602
  17. LANSOPRAZOLE. [Suspect]
     Active Substance: LANSOPRAZOLE
     Dosage: DILUTED IN SODIUM CHLORIDE (ZHEJIANG KANGJI^ER PHARMACEUTICAL CO., LTD.), DOSE REINTRODUCED
     Route: 041
  18. 20% MANNITOL INJECTION [Suspect]
     Active Substance: MANNITOL
     Indication: BRAIN STEM HAEMORRHAGE
     Route: 041
     Dates: start: 20180530, end: 20180603
  19. SODIUM VALPROATE [Suspect]
     Active Substance: VALPROATE SODIUM
     Dosage: ROUTE: VIA MICROPUMP INFUSION, DILUTED IN SODIUM CHLORIDE
     Route: 065
  20. SODIUM CHLORIDE. [Suspect]
     Active Substance: SODIUM CHLORIDE
     Dosage: SOLVENT FOR BEIQINGXING
     Route: 041
     Dates: start: 20180529, end: 20180606
  21. SODIUM CHLORIDE. [Suspect]
     Active Substance: SODIUM CHLORIDE
     Dosage: SOLVENT FOR LANSOPRAZOLE POWDER FOR INJECTION
     Route: 041
  22. LAILIXIN [Suspect]
     Active Substance: LEVOFLOXACIN
     Dosage: DOSE REINTRODUCED
     Route: 041
  23. FUROSEMIDE. [Suspect]
     Active Substance: FUROSEMIDE
     Indication: BRAIN STEM HAEMORRHAGE
     Dosage: QD
     Route: 042
     Dates: start: 20180530, end: 20180602
  24. SODIUM CHLORIDE. [Suspect]
     Active Substance: SODIUM CHLORIDE
     Dosage: SOLVENT FOR CEFTAZIDIME FOR INJECTION
     Route: 041
     Dates: start: 20180529, end: 20180605
  25. TRANEXAMIC ACID. [Suspect]
     Active Substance: TRANEXAMIC ACID
     Dosage: DILUTED IN GLUCOSE 5%, DOSE REINTRODUCED
     Route: 041
  26. SULING [Suspect]
     Active Substance: UNSPECIFIED INGREDIENT
     Dosage: DILUTED IN SODIUM CHLORIDE, DOSE REINTRODUCED
     Route: 040
  27. 0.9% SODIUM CHLORIDE INJECTION [Suspect]
     Active Substance: SODIUM CHLORIDE
     Dosage: ROUTE: VIA MICROPUMP INFUSION, SOLVENT FOR SODIUM VALPROATE POWDER FOR INJECTION
     Route: 065
  28. GLUCOSE [Suspect]
     Active Substance: DEXTROSE
     Indication: MEDICATION DILUTION
     Dosage: SOLVENT FOR TROXERUTIN AND CEREBROPROTEIN HYDROLYSATE INJECTION
     Route: 041
     Dates: start: 20180529, end: 20180606
  29. GLUCOSE [Suspect]
     Active Substance: DEXTROSE
     Dosage: SOLVENT FOR TRANEXAMIC ACID POWDER FOR INJECTION
     Route: 041
     Dates: start: 20180529, end: 20180602
  30. 0.9% SODIUM CHLORIDE INJECTION [Suspect]
     Active Substance: SODIUM CHLORIDE
     Dosage: SOLVENT FOR SULING, DOSE REINTRODUCED
     Route: 040
  31. SODIUM VALPROATE [Suspect]
     Active Substance: VALPROATE SODIUM
     Indication: BRAIN STEM HAEMORRHAGE
     Dosage: ROUTE: VIA MICROPUMP INFUSION, DILUTED IN SODIUM CHLORIDE
     Route: 065
     Dates: start: 20180529, end: 20180605
  32. SODIUM CHLORIDE. [Suspect]
     Active Substance: SODIUM CHLORIDE
     Indication: MEDICATION DILUTION
     Dosage: Q12H, SOLVENT FOR LANSOPRAZOLE POWDER FOR INJECTION
     Route: 041
     Dates: start: 20180529, end: 20180602
  33. SULING [Suspect]
     Active Substance: UNSPECIFIED INGREDIENT
     Indication: BRAIN STEM HAEMORRHAGE
     Dosage: DOSE: 2 U, Q12H, DILUTED IN SODIUM CHLORIDE
     Route: 040
     Dates: start: 20180529, end: 20180602

REACTIONS (14)
  - Brain oedema [Unknown]
  - Respiratory failure [Unknown]
  - Sinusitis [Unknown]
  - Brain stem haemorrhage [Unknown]
  - Renal impairment [Recovering/Resolving]
  - Sputum culture positive [Unknown]
  - Hypertension [Unknown]
  - Condition aggravated [Unknown]
  - Pneumonia aspiration [Unknown]
  - Staphylococcal infection [Unknown]
  - Oedema [Unknown]
  - Death [Fatal]
  - Rhabdomyolysis [Recovering/Resolving]
  - Pneumonia [Unknown]

NARRATIVE: CASE EVENT DATE: 20180601
